FAERS Safety Report 16376442 (Version 1)
Quarter: 2019Q2

REPORT INFORMATION
  Report Type: Spontaneous
  Country: DE (occurrence: DE)
  Receive Date: 20190531
  Receipt Date: 20190531
  Transmission Date: 20190711
  Serious: Yes (Congenital Anomaly)
  Sender: FDA-Public Use
  Company Number: DE-BAYER-2019-106523

PATIENT

DRUGS (1)
  1. JAYDESS [Suspect]
     Active Substance: LEVONORGESTREL
     Indication: CONTRACEPTION
     Dosage: 14 MCG/24HR, CONT
     Route: 064
     Dates: start: 201702

REACTIONS (2)
  - Anencephaly [None]
  - Foetal exposure during pregnancy [None]

NARRATIVE: CASE EVENT DATE: 201902
